FAERS Safety Report 6189891-4 (Version None)
Quarter: 2009Q2

REPORT INFORMATION
  Report Type: 
  Country: None (occurrence: None)
  Receive Date: 20090514
  Receipt Date: 20090506
  Transmission Date: 20091009
  Serious: Yes (Death, Hospitalization)
  Sender: FDA-Public Use
  Company Number: BE-CELGENEUS-013-21880-09031242

PATIENT
  Sex: Male
  Weight: 65 kg

DRUGS (13)
  1. REVLIMID [Suspect]
     Indication: MYELOFIBROSIS
     Route: 048
     Dates: start: 20090223, end: 20090315
  2. RED BLOOD CELLS [Concomitant]
     Dosage: UNIT
     Route: 051
     Dates: start: 20050707, end: 20090312
  3. RED BLOOD CELLS [Concomitant]
     Indication: MYELOFIBROSIS
  4. HYDROXYUREA [Concomitant]
     Indication: MYELOFIBROSIS
     Route: 048
     Dates: start: 20070510, end: 20090222
  5. SOTALEX [Concomitant]
     Route: 048
     Dates: start: 20040101, end: 20090316
  6. MEDROL [Concomitant]
     Indication: ANOREXIA
     Route: 048
     Dates: start: 20050707, end: 20090312
  7. MEDROL [Concomitant]
     Indication: MYELOFIBROSIS
  8. DURAGESIC-100 [Concomitant]
     Indication: BONE PAIN
     Route: 062
     Dates: start: 20090214, end: 20090316
  9. DURAGESIC-100 [Concomitant]
     Indication: MYELOFIBROSIS
  10. IBUPROFEN [Concomitant]
     Indication: GOUT
     Route: 048
     Dates: start: 20090225, end: 20090312
  11. ALLOPURINOL [Concomitant]
     Indication: GOUT
     Route: 048
     Dates: start: 20090220, end: 20090312
  12. COLCHICINE [Concomitant]
     Indication: GOUT
     Dates: start: 20090225, end: 20090312
  13. MAGNESIUM SULFATE [Concomitant]
     Indication: DRUG USE FOR UNKNOWN INDICATION
     Route: 065

REACTIONS (6)
  - BRONCHOPNEUMONIA [None]
  - CARDIAC FAILURE [None]
  - IRON OVERLOAD [None]
  - MALAISE [None]
  - PYREXIA [None]
  - RESPIRATORY FAILURE [None]
